FAERS Safety Report 21540115 (Version 2)
Quarter: 2022Q4

REPORT INFORMATION
  Report Type: Spontaneous
  Country: RO (occurrence: None)
  Receive Date: 20221102
  Receipt Date: 20221109
  Transmission Date: 20230113
  Serious: Yes (Hospitalization, Other)
  Sender: FDA-Public Use
  Company Number: RO-ROCHE-3083301

PATIENT
  Age: 4 Year
  Sex: Male
  Weight: 27 kg

DRUGS (1)
  1. EVRYSDI [Suspect]
     Active Substance: RISDIPLAM
     Indication: Spinal muscular atrophy
     Route: 048
     Dates: start: 20220418

REACTIONS (3)
  - Pyrexia [Unknown]
  - Pneumonia [Unknown]
  - Ataxia [Unknown]

NARRATIVE: CASE EVENT DATE: 20220801
